FAERS Safety Report 10691144 (Version 6)
Quarter: 2015Q1

REPORT INFORMATION
  Report Type: Spontaneous
  Country: US (occurrence: US)
  Receive Date: 20150105
  Receipt Date: 20150330
  Transmission Date: 20150720
  Serious: Yes (Other)
  Sender: FDA-Public Use
  Company Number: US-PFIZER INC-2014360627

PATIENT
  Age: 63 Year
  Sex: Male
  Weight: 93 kg

DRUGS (11)
  1. CADUET [Suspect]
     Active Substance: AMLODIPINE BESYLATE\ATORVASTATIN CALCIUM
     Indication: BLOOD PRESSURE
  2. METFORMIN [Concomitant]
     Active Substance: METFORMIN HYDROCHLORIDE
     Indication: DIABETES MELLITUS
     Dosage: 500 MG, UNK
     Route: 048
     Dates: start: 2008
  3. BENICAR [Suspect]
     Active Substance: OLMESARTAN MEDOXOMIL
     Dosage: 40/12.5 MG, 2X/DAY
     Route: 048
  4. HUMULIN 70/30 [Concomitant]
     Active Substance: INSULIN HUMAN
     Indication: DIABETES MELLITUS
     Dosage: 20 IU, 2X/DAY
     Route: 058
     Dates: start: 2008
  5. BENICAR [Suspect]
     Active Substance: OLMESARTAN MEDOXOMIL
     Dosage: 40.5 MG, 2X/DAY
     Route: 048
     Dates: start: 2004
  6. BENICAR [Suspect]
     Active Substance: OLMESARTAN MEDOXOMIL
     Indication: BLOOD PRESSURE
     Dosage: 60 MG, 2X/DAY
     Route: 048
     Dates: end: 2004
  7. GLIPIZIDE. [Concomitant]
     Active Substance: GLIPIZIDE
     Indication: DIABETES MELLITUS
     Dosage: 10 MG, UNK
     Route: 048
     Dates: start: 2008
  8. POTASSIUM CLER [Concomitant]
     Indication: HYPOKALAEMIA
     Dosage: 20 MEQ, DAILY
     Route: 048
     Dates: start: 2005
  9. CADUET [Suspect]
     Active Substance: AMLODIPINE BESYLATE\ATORVASTATIN CALCIUM
     Indication: BLOOD CHOLESTEROL
     Dosage: 5 MG/20 MG, 1X/DAY
     Route: 048
     Dates: start: 2004
  10. CADUET [Suspect]
     Active Substance: AMLODIPINE BESYLATE\ATORVASTATIN CALCIUM
     Indication: BLOOD CHOLESTEROL INCREASED
  11. MOBIC [Concomitant]
     Active Substance: MELOXICAM
     Indication: MUSCLE DISORDER
     Dosage: 15 MG, 1X/DAY
     Route: 048
     Dates: start: 2005

REACTIONS (8)
  - Drug ineffective [Unknown]
  - Deafness [Not Recovered/Not Resolved]
  - VIIth nerve paralysis [Recovering/Resolving]
  - Incorrect dose administered [Unknown]
  - Visual acuity reduced [Recovering/Resolving]
  - Stress [Unknown]
  - Vitreous floaters [Recovering/Resolving]
  - Joint injury [Unknown]

NARRATIVE: CASE EVENT DATE: 20131013
